FAERS Safety Report 11474268 (Version 1)
Quarter: 2015Q3

REPORT INFORMATION
  Report Type: Spontaneous
  Country: US (occurrence: None)
  Receive Date: 20150908
  Receipt Date: 20150908
  Transmission Date: 20151125
  Serious: Yes (Disabling)
  Sender: FDA-Public Use
  Company Number: None

PATIENT
  Age: 42 Year
  Sex: Female
  Weight: 98.43 kg

DRUGS (3)
  1. VIIBRYD [Suspect]
     Active Substance: VILAZODONE HYDROCHLORIDE
     Indication: POST-TRAUMATIC STRESS DISORDER
     Route: 048
  2. VIIBRYD [Suspect]
     Active Substance: VILAZODONE HYDROCHLORIDE
     Indication: NIGHTMARE
     Route: 048
  3. VIIBRYD [Suspect]
     Active Substance: VILAZODONE HYDROCHLORIDE
     Indication: DEPRESSION
     Route: 048

REACTIONS (9)
  - Impaired work ability [None]
  - Activities of daily living impaired [None]
  - Sleep paralysis [None]
  - Arthralgia [None]
  - Paraesthesia [None]
  - Fall [None]
  - Vomiting [None]
  - Nightmare [None]
  - Loss of control of legs [None]

NARRATIVE: CASE EVENT DATE: 20150905
